FAERS Safety Report 6423597-9 (Version None)
Quarter: 2009Q4

REPORT INFORMATION
  Report Type: 
  Country: None (occurrence: None)
  Receive Date: 20091028
  Receipt Date: 20091023
  Transmission Date: 20100525
  Serious: Yes (Other)
  Sender: FDA-Public Use
  Company Number: 2009SP028124

PATIENT
  Age: 71 Year
  Sex: Female
  Weight: 53 kg

DRUGS (8)
  1. CELESTONE [Suspect]
     Indication: SCIATICA
     Dosage: ONCE
     Dates: start: 20090804
  2. URISPAS [Concomitant]
  3. SIMVASTATIN [Concomitant]
  4. COLPOTROPHINE [Concomitant]
  5. OROCAL [Concomitant]
  6. FORLAX [Concomitant]
  7. PIASCLEDINE [Concomitant]
  8. CHONDROSULF [Concomitant]

REACTIONS (8)
  - AMNESIA [None]
  - ANAPHYLACTIC SHOCK [None]
  - BLOOD PRESSURE INCREASED [None]
  - FALL [None]
  - LOSS OF CONSCIOUSNESS [None]
  - MUSCULOSKELETAL STIFFNESS [None]
  - MYALGIA [None]
  - TREMOR [None]
